FAERS Safety Report 16371663 (Version 1)
Quarter: 2019Q2

REPORT INFORMATION
  Report Type: Spontaneous
  Country: US (occurrence: US)
  Receive Date: 20190530
  Receipt Date: 20190530
  Transmission Date: 20190711
  Serious: Yes (Other)
  Sender: FDA-Public Use
  Company Number: US-ENDO PHARMACEUTICALS INC-2019-105126

PATIENT
  Sex: Male
  Weight: 61.22 kg

DRUGS (4)
  1. ESZOPICLONE. [Concomitant]
     Active Substance: ESZOPICLONE
     Indication: INSOMNIA
     Dosage: 3 MG, DAILY AT NIGHT
     Route: 065
     Dates: start: 20190506
  2. AVEED [Suspect]
     Active Substance: TESTOSTERONE UNDECANOATE
     Dosage: UNK UNKNOWN, UNKNOWN
     Route: 065
     Dates: start: 20190128
  3. AVEED [Suspect]
     Active Substance: TESTOSTERONE UNDECANOATE
     Indication: BLOOD TESTOSTERONE DECREASED
     Dosage: 1 MG, UNKNOWN
     Route: 065
     Dates: start: 20190410
  4. AVEED [Suspect]
     Active Substance: TESTOSTERONE UNDECANOATE
     Dosage: UNK UNKNOWN, UNKNOWN
     Route: 065
     Dates: start: 20171020

REACTIONS (4)
  - Fatigue [Unknown]
  - Gastrooesophageal reflux disease [Unknown]
  - Pancreatitis [Unknown]
  - Dyspnoea [Unknown]

NARRATIVE: CASE EVENT DATE: 2018
